FAERS Safety Report 8541044-8 (Version None)
Quarter: 2012Q3

REPORT INFORMATION
  Report Type: 
  Country: None (occurrence: None)
  Receive Date: 20120726
  Receipt Date: 20111031
  Transmission Date: 20120928
  Serious: No
  Sender: FDA-Public Use
  Company Number: US-ASTRAZENECA-2011SE50124

PATIENT
  Age: 52 Year
  Sex: Male
  Weight: 80.7 kg

DRUGS (4)
  1. SEROQUEL [Suspect]
     Indication: SCHIZOAFFECTIVE DISORDER BIPOLAR TYPE
     Route: 048
     Dates: start: 20110828
  2. SEROQUEL [Suspect]
     Indication: DEMENTIA
     Route: 048
     Dates: start: 20110828
  3. HYDROCODONE BITARTRATE [Concomitant]
     Indication: LIMB DISCOMFORT
  4. HYDROCODONE BITARTRATE [Concomitant]
     Indication: PAIN

REACTIONS (6)
  - PSYCHOTIC DISORDER [None]
  - MALAISE [None]
  - HANGOVER [None]
  - FEELING ABNORMAL [None]
  - AGGRESSION [None]
  - DRUG DOSE OMISSION [None]
